FAERS Safety Report 22102089 (Version 1)
Quarter: 2023Q1

REPORT INFORMATION
  Report Type: Spontaneous
  Country: SE (occurrence: SE)
  Receive Date: 20230316
  Receipt Date: 20230316
  Transmission Date: 20230418
  Serious: Yes (Hospitalization)
  Sender: FDA-Public Use
  Company Number: None

PATIENT
  Age: 19 Year
  Sex: Male

DRUGS (5)
  1. MIRTAZAPINE [Suspect]
     Active Substance: MIRTAZAPINE
     Dosage: 27 PIECES MIRTAZAPIN 30 MG
     Route: 048
     Dates: start: 20190604, end: 20190604
  2. OLANZAPINE [Suspect]
     Active Substance: OLANZAPINE
     Dosage: 28 PIECES OLANZAPIN 5 MG
     Route: 048
     Dates: start: 20190604, end: 20190604
  3. VENLAFAXINE [Suspect]
     Active Substance: VENLAFAXINE HYDROCHLORIDE
     Dosage: AT LEAST 50 PIECES OF VENLAFAXINE 75 MG
     Route: 048
     Dates: start: 20190604, end: 20190604
  4. QUETIAPINE [Suspect]
     Active Substance: QUETIAPINE
     Dosage: 40 PIECES QUETIPAIN 25 MG
     Route: 048
     Dates: start: 20190604, end: 20190604
  5. OLANZAPINE [Suspect]
     Active Substance: OLANZAPINE
     Dosage: 7 OLNAZAPIN 7.5 MG
     Route: 048
     Dates: start: 20190604, end: 20190604

REACTIONS (5)
  - Intentional overdose [Unknown]
  - Tachycardia [Unknown]
  - Intentional self-injury [Unknown]
  - Akathisia [Unknown]
  - Depressed level of consciousness [Unknown]

NARRATIVE: CASE EVENT DATE: 20190604
